FAERS Safety Report 19922631 (Version 1)
Quarter: 2021Q4

REPORT INFORMATION
  Report Type: Spontaneous
  Country: PL (occurrence: PL)
  Receive Date: 20211006
  Receipt Date: 20211006
  Transmission Date: 20220303
  Serious: Yes (Death, Hospitalization)
  Sender: FDA-Public Use
  Company Number: PL-STRIDES ARCOLAB LIMITED-2021SP028317

PATIENT
  Age: 16 Month
  Sex: Female

DRUGS (9)
  1. DEXAMETHASONE [Suspect]
     Active Substance: DEXAMETHASONE
     Indication: Product used for unknown indication
     Dosage: UNK
     Route: 042
  2. PREDNISOLONE [Suspect]
     Active Substance: PREDNISOLONE
     Indication: Immune thrombocytopenia
     Dosage: UNK
     Route: 065
  3. TREOSULFAN [Suspect]
     Active Substance: TREOSULFAN
     Indication: Bone marrow conditioning regimen
     Dosage: 10 GRAM PER SQUARE METRE, TID
     Route: 065
  4. FLUDARABINE [Suspect]
     Active Substance: FLUDARABINE PHOSPHATE
     Indication: Bone marrow conditioning regimen
     Dosage: 30 MILLIGRAM/SQ. METER (5 TIMES)
     Route: 065
  5. GRAFALON [Suspect]
     Active Substance: LAPINE T-LYMPHOCYTE IMMUNE GLOBULIN
     Indication: Bone marrow conditioning regimen
     Dosage: 45 MILLIGRAM/KILOGRAM
     Route: 065
  6. DIMETHYL SULFOXIDE [Suspect]
     Active Substance: DIMETHYL SULFOXIDE
     Indication: Drug therapy
     Dosage: UNK (GRAFT MATERIAL WAS CRYOPRESERVED WITH A FINAL DIMETHYL SULFOXIDE)
     Route: 065
  7. FILGRASTIM [Concomitant]
     Active Substance: FILGRASTIM
     Indication: Neutropenia
     Dosage: UNK
     Route: 065
  8. FILGRASTIM [Concomitant]
     Active Substance: FILGRASTIM
     Indication: Leukopenia
  9. ELTROMBOPAG [Concomitant]
     Active Substance: ELTROMBOPAG
     Indication: Congenital thrombocytopenia
     Dosage: 25 MILLIGRAM (3 MG/KG)
     Route: 065

REACTIONS (7)
  - Alpha haemolytic streptococcal infection [Fatal]
  - Nervous system disorder [Fatal]
  - Coma [Fatal]
  - Brain oedema [Fatal]
  - Intracranial pressure increased [Fatal]
  - Brain herniation [Fatal]
  - Brain death [Fatal]
